FAERS Safety Report 17418960 (Version 1)
Quarter: 2020Q1

REPORT INFORMATION
  Report Type: Spontaneous
  Country: PT (occurrence: PT)
  Receive Date: 20200214
  Receipt Date: 20200214
  Transmission Date: 20200409
  Serious: Yes (Death, Other)
  Sender: FDA-Public Use
  Company Number: PT-AMICUS THERAPEUTICS, INC.-AMI_738

PATIENT
  Sex: Male

DRUGS (1)
  1. GALAFOLD [Suspect]
     Active Substance: MIGALASTAT HYDROCHLORIDE
     Indication: FABRY^S DISEASE
     Dosage: UNK
     Route: 048
     Dates: start: 201910

REACTIONS (3)
  - Pancreatic neoplasm [Unknown]
  - Immunodeficiency [Unknown]
  - Pneumonia [Fatal]
